FAERS Safety Report 8170542-4 (Version None)
Quarter: 2012Q1

REPORT INFORMATION
  Report Type: 
  Country: None (occurrence: None)
  Receive Date: 20120104
  Receipt Date: 20111011
  Transmission Date: 20120608
  Serious: No
  Sender: FDA-Public Use
  Company Number: 2011HGS-002544

PATIENT
  Age: 49 Year
  Sex: Female
  Weight: 61.2356 kg

DRUGS (16)
  1. TRANXENE [Concomitant]
  2. ARAVA [Concomitant]
  3. KLONOPIN [Concomitant]
  4. EFFEXOR [Concomitant]
  5. TRAMADOL HCL [Concomitant]
  6. CORTICOSTEROIDS (CORTICOSTEROIDS NOS) [Concomitant]
  7. PLAQUENIL [Concomitant]
  8. PREDNISONE TAB [Concomitant]
  9. RESTORIL [Concomitant]
  10. ARICEPT [Concomitant]
  11. BENLYSTA [Suspect]
     Indication: SYSTEMIC LUPUS ERYTHEMATOSUS
     Dosage: 1 IN 2 WK, INTRAVENOUS DRIP
     Route: 041
     Dates: start: 20110727
  12. CYCLOBENZAPRINE [Concomitant]
  13. TOPROL-XL [Concomitant]
  14. ADDERALL (OBETROL) (DEXAMFETAMINE SULFATE, AMFETAMINE SULFATE, DEXAMFE [Concomitant]
  15. EVOXAC [Concomitant]
  16. FOSAMAX [Concomitant]

REACTIONS (4)
  - INFLUENZA LIKE ILLNESS [None]
  - OROPHARYNGEAL PAIN [None]
  - PAIN [None]
  - PYREXIA [None]
